FAERS Safety Report 21928654 (Version 1)
Quarter: 2023Q1

REPORT INFORMATION
  Report Type: Spontaneous
  Country: US (occurrence: US)
  Receive Date: 20230130
  Receipt Date: 20230130
  Transmission Date: 20230418
  Serious: Yes (Other)
  Sender: FDA-Public Use
  Company Number: US-drreddys-SPO/USA/22/0158948

PATIENT
  Age: 75 Year
  Sex: Female

DRUGS (13)
  1. LENALIDOMIDE [Suspect]
     Active Substance: LENALIDOMIDE
     Indication: Congenital hiatus hernia
     Dosage: TAKE 1 CAPSULE BY MOUTH DAILY ON DAYS 1-14 THEN REST FOR 7 DAYS OF EVERY 21 DAY CYCLE
     Route: 048
     Dates: start: 20221019
  2. CETIRIZINE [Concomitant]
     Active Substance: CETIRIZINE HYDROCHLORIDE
     Indication: Product used for unknown indication
  3. DOCUSATE SOD CAP 100MG [Concomitant]
     Indication: Product used for unknown indication
  4. DEXAMETHASONE [Concomitant]
     Active Substance: DEXAMETHASONE
     Indication: Product used for unknown indication
  5. HYDROCODONE- TAB 10- 325MG [Concomitant]
     Indication: Product used for unknown indication
     Dosage: 10- 325MG
  6. LEVOTHYROXIN TAB 50MCG [Concomitant]
     Indication: Product used for unknown indication
  7. MORPHINE SUL TBC 15MG [Concomitant]
     Indication: Product used for unknown indication
  8. ONDANSETRON [Concomitant]
     Active Substance: ONDANSETRON
     Indication: Product used for unknown indication
  9. PROTONIX TBE 40MG [Concomitant]
     Indication: Product used for unknown indication
  10. SOLIFENACIN TAB 5MG [Concomitant]
     Indication: Product used for unknown indication
  11. TUMS CHE 500MG [Concomitant]
     Indication: Product used for unknown indication
  12. TYLENOL 8 HO TBC 650MG [Concomitant]
     Indication: Product used for unknown indication
  13. VELCADE OL 3.5MG [Concomitant]
     Indication: Product used for unknown indication

REACTIONS (8)
  - Hypokalaemia [Not Recovered/Not Resolved]
  - Peripheral swelling [Not Recovered/Not Resolved]
  - Fatigue [Not Recovered/Not Resolved]
  - Dyspnoea [Not Recovered/Not Resolved]
  - Urinary tract infection [Not Recovered/Not Resolved]
  - Dehydration [Not Recovered/Not Resolved]
  - Product use in unapproved indication [Unknown]
  - Product use issue [Unknown]
